FAERS Safety Report 19391611 (Version 1)
Quarter: 2021Q2

REPORT INFORMATION
  Report Type: Spontaneous
  Country: DE (occurrence: DE)
  Receive Date: 20210609
  Receipt Date: 20210609
  Transmission Date: 20210717
  Serious: Yes (Other)
  Sender: FDA-Public Use
  Company Number: DE-SUN PHARMACEUTICAL INDUSTRIES LTD-2021RR-299809

PATIENT
  Sex: Female

DRUGS (1)
  1. CIPRO BASICS [Suspect]
     Active Substance: CIPROFLOXACIN HYDROCHLORIDE
     Indication: PRODUCT USED FOR UNKNOWN INDICATION
     Dosage: UNK
     Route: 065
     Dates: start: 202101

REACTIONS (43)
  - Osteoarthritis [Unknown]
  - Asthenia [Unknown]
  - Sleep disorder [Unknown]
  - Dyspnoea [Unknown]
  - Fibromyalgia [Unknown]
  - Abdominal discomfort [Unknown]
  - Feeling abnormal [Unknown]
  - Fatigue [Unknown]
  - Cataract [Unknown]
  - Eye pain [Unknown]
  - Sensory disturbance [Unknown]
  - Pain [Unknown]
  - Pruritus [Unknown]
  - Depression [Unknown]
  - Memory impairment [Unknown]
  - Polyneuropathy [Unknown]
  - Cartilage injury [Unknown]
  - Dry mouth [Unknown]
  - Heart rate increased [Unknown]
  - Headache [Unknown]
  - Visual impairment [Unknown]
  - Autonomic neuropathy [Unknown]
  - Small fibre neuropathy [Unknown]
  - Tendon pain [Unknown]
  - Panic attack [Unknown]
  - Alopecia [Unknown]
  - Arthralgia [Unknown]
  - Nervousness [Unknown]
  - Incontinence [Unknown]
  - Restlessness [Unknown]
  - Haemarthrosis [Unknown]
  - Hypoaesthesia [Unknown]
  - Anxiety [Unknown]
  - Sleep apnoea syndrome [Unknown]
  - Urinary hesitation [Unknown]
  - Disturbance in attention [Unknown]
  - Hypoacusis [Unknown]
  - Dizziness [Unknown]
  - Breast pain [Unknown]
  - Apathy [Unknown]
  - Condition aggravated [Unknown]
  - Oesophageal achalasia [Unknown]
  - Limb discomfort [Unknown]

NARRATIVE: CASE EVENT DATE: 2021
